FAERS Safety Report 21587738 (Version 1)
Quarter: 2022Q4

REPORT INFORMATION
  Report Type: Spontaneous
  Country: None (occurrence: US)
  Receive Date: 20221114
  Receipt Date: 20221114
  Transmission Date: 20230113
  Serious: Yes (Other)
  Sender: FDA-Public Use
  Company Number: US-Jiangsu Hengrui Medicine Co., Ltd.-2134820

PATIENT
  Age: 16 Year
  Sex: Male
  Weight: 88 kg

DRUGS (8)
  1. DEXMEDETOMIDINE HYDROCHLORIDE [Suspect]
     Active Substance: DEXMEDETOMIDINE HYDROCHLORIDE
     Indication: Analgesic therapy
     Route: 041
  2. PROPOFOL [Concomitant]
     Active Substance: PROPOFOL
     Route: 041
  3. SEVOFLURANE [Concomitant]
     Active Substance: SEVOFLURANE
     Route: 041
  4. REMIFENTANIL HYDROCHLORIDE [Concomitant]
     Active Substance: REMIFENTANIL HYDROCHLORIDE
     Route: 041
  5. MIDAZOLAM [Concomitant]
     Active Substance: MIDAZOLAM
  6. ROCURONIUM [Concomitant]
     Active Substance: ROCURONIUM BROMIDE
  7. FENTANYL [Concomitant]
     Active Substance: FENTANYL
  8. LIDOCAINE [Concomitant]
     Active Substance: LIDOCAINE

REACTIONS (1)
  - Diabetes insipidus [Recovered/Resolved]
